FAERS Safety Report 8185755 (Version 6)
Quarter: 2015Q1

REPORT INFORMATION
  Report Type: Report from Study
  Country: JP (occurrence: JP)
  Receive Date: 20111018
  Receipt Date: 20150116
  Transmission Date: 20150721
  Serious: Yes (Hospitalization)
  Sender: FDA-Public Use
  Company Number: PHHY2011JP90093

PATIENT
  Age: 57 Year
  Sex: Male

DRUGS (11)
  1. OMEPRAL [Concomitant]
     Active Substance: OMEPRAZOLE
     Indication: PRODUCT USED FOR UNKNOWN INDICATION
     Dosage: 10 MG, DAILY
     Route: 048
  2. AMN107 [Suspect]
     Active Substance: NILOTINIB
     Indication: CHRONIC MYELOID LEUKAEMIA
     Dosage: 800 MG, QD
     Route: 048
     Dates: start: 20090730
  3. VESICARE [Concomitant]
     Active Substance: SOLIFENACIN SUCCINATE
     Indication: PRODUCT USED FOR UNKNOWN INDICATION
     Dosage: 5 MG, QD
     Route: 048
  4. XYZAL [Concomitant]
     Active Substance: LEVOCETIRIZINE DIHYDROCHLORIDE
     Indication: PROPHYLAXIS
     Dosage: 5 MG
     Route: 048
     Dates: start: 20120419
  5. CRAVIT [Concomitant]
     Active Substance: LEVOFLOXACIN
     Indication: PRODUCT USED FOR UNKNOWN INDICATION
     Dosage: 5 ML, QD
     Route: 047
  6. NIPOLAZIN [Concomitant]
     Dosage: 6 MG, QD
     Route: 048
     Dates: start: 20090811
  7. MYONAL [Concomitant]
     Active Substance: EPERISONE HYDROCHLORIDE
     Indication: PROPHYLAXIS
     Dosage: 100 MG
     Route: 048
     Dates: start: 20110922
  8. AMLODIN [Concomitant]
     Active Substance: AMLODIPINE BESYLATE
     Indication: PRODUCT USED FOR UNKNOWN INDICATION
     Dosage: 5 MG, QD
     Route: 048
  9. NIPOLAZIN [Concomitant]
     Indication: PROPHYLAXIS
     Dosage: 12 MG, QD
     Route: 048
     Dates: start: 20090811
  10. MUCOSTA [Concomitant]
     Active Substance: REBAMIPIDE
     Indication: PROPHYLAXIS
     Dosage: 300 MG, QD
     Route: 048
  11. BETNEVATE N [Concomitant]
     Indication: PRODUCT USED FOR UNKNOWN INDICATION
     Dosage: 5 G, QD
     Route: 061

REACTIONS (10)
  - Nausea [Recovering/Resolving]
  - Vomiting [Recovering/Resolving]
  - Hypophosphataemia [Recovered/Resolved]
  - Blood bilirubin increased [Unknown]
  - Acute myocardial infarction [Recovering/Resolving]
  - Gamma-glutamyltransferase increased [Unknown]
  - Coronary artery occlusion [Recovering/Resolving]
  - Chest discomfort [Recovering/Resolving]
  - Electrocardiogram ST segment abnormal [Recovering/Resolving]
  - Rash [Recovering/Resolving]

NARRATIVE: CASE EVENT DATE: 20090811
